FAERS Safety Report 8874147 (Version 3)
Quarter: 2012Q4

REPORT INFORMATION
  Report Type: 
  Country: AR (occurrence: AR)
  Receive Date: 20121031
  Receipt Date: 20121224
  Transmission Date: 20130627
  Serious: Yes (Other)
  Sender: FDA-Public Use
  Company Number: AR-AMGEN-ARGSP2012068673

PATIENT
  Age: 57 Year
  Sex: Female

DRUGS (6)
  1. ENBREL [Suspect]
     Indication: RHEUMATOID ARTHRITIS
     Dosage: 50 mg, weekly
     Route: 058
     Dates: start: 20100715, end: 20120903
  2. ENBREL [Suspect]
     Dosage: 50 mg, weekly
     Route: 058
     Dates: start: 20100715, end: 20121110
  3. ENBREL [Suspect]
     Dosage: UNK
     Dates: start: 20121125
  4. METHOTREXATE [Concomitant]
     Dosage: UNK
  5. MELOXICAM [Concomitant]
     Dosage: UNK
  6. FOLIC ACID [Concomitant]
     Dosage: UNK

REACTIONS (6)
  - Drug ineffective [Not Recovered/Not Resolved]
  - Malaise [Unknown]
  - Pyrexia [Unknown]
  - Cough [Unknown]
  - Respiratory tract congestion [Unknown]
  - Oropharyngeal pain [Unknown]
